FAERS Safety Report 19002231 (Version 1)
Quarter: 2021Q1

REPORT INFORMATION
  Report Type: Spontaneous
  Country: NC (occurrence: NC)
  Receive Date: 20210312
  Receipt Date: 20210312
  Transmission Date: 20210420
  Serious: Yes (Other)
  Sender: FDA-Public Use
  Company Number: NC-TEVA-2021-NC-1887774

PATIENT
  Sex: Female

DRUGS (1)
  1. MODIODAL [Suspect]
     Active Substance: MODAFINIL
     Indication: HYPERSOMNIA
     Route: 065

REACTIONS (3)
  - Product use in unapproved indication [Unknown]
  - Reversible cerebral vasoconstriction syndrome [Recovered/Resolved]
  - Headache [Recovered/Resolved]

NARRATIVE: CASE EVENT DATE: 202101
